FAERS Safety Report 4342877-4 (Version None)
Quarter: 2004Q2

REPORT INFORMATION
  Report Type: 
  Country: None (occurrence: None)
  Receive Date: 20040416
  Receipt Date: 20040408
  Transmission Date: 20050107
  Serious: Yes (Hospitalization)
  Sender: FDA-Public Use
  Company Number: 2004-114926-NL

PATIENT
  Age: 90 Year
  Sex: Female

DRUGS (1)
  1. MIRTAZAPINE [Suspect]
     Indication: DEPRESSION
     Dosage: 15 MG
     Route: 048
     Dates: start: 20040101, end: 20040301

REACTIONS (3)
  - ANAEMIA [None]
  - NEUTROPENIA [None]
  - THROMBOCYTHAEMIA [None]
